FAERS Safety Report 17065302 (Version 2)
Quarter: 2019Q4

REPORT INFORMATION
  Report Type: Spontaneous
  Country: IT (occurrence: IT)
  Receive Date: 20191122
  Receipt Date: 20191202
  Transmission Date: 20200122
  Serious: Yes (Other)
  Sender: FDA-Public Use
  Company Number: IT-MYLANLABS-2019M1111980

PATIENT
  Age: 79 Year
  Sex: Male

DRUGS (4)
  1. IMATINIB. [Suspect]
     Active Substance: IMATINIB MESYLATE
     Indication: CHORDOMA
     Dosage: 600 MILLIGRAM, QD
     Route: 065
  2. IMATINIB. [Suspect]
     Active Substance: IMATINIB MESYLATE
     Dosage: 600 MILLIGRAM, QD
     Route: 065
     Dates: start: 201606, end: 201707
  3. IMATINIB. [Suspect]
     Active Substance: IMATINIB MESYLATE
     Dosage: 600 MILLIGRAM, QD
     Route: 065
     Dates: start: 201510
  4. IMATINIB. [Suspect]
     Active Substance: IMATINIB MESYLATE
     Dosage: 800 MILLIGRAM, QD
     Route: 065

REACTIONS (7)
  - Platelet count decreased [Recovered/Resolved]
  - Metastases to pelvis [Unknown]
  - Bone pain [Recovering/Resolving]
  - Product use in unapproved indication [Unknown]
  - Metastases to bone [Unknown]
  - Off label use [Unknown]
  - Malignant neoplasm progression [Unknown]
